FAERS Safety Report 21855248 (Version 2)
Quarter: 2023Q1

REPORT INFORMATION
  Report Type: Spontaneous
  Country: US (occurrence: US)
  Receive Date: 20230112
  Receipt Date: 20230131
  Transmission Date: 20230417
  Serious: Yes (Other)
  Sender: FDA-Public Use
  Company Number: US-002147023-NVSC2023US004613

PATIENT
  Sex: Male

DRUGS (9)
  1. EVEROLIMUS [Suspect]
     Active Substance: EVEROLIMUS
     Indication: Cerebral disorder
     Dosage: UNK, QD (FOR 28 DAYS VIA GASTRIC TUBE)
  2. EVEROLIMUS [Suspect]
     Active Substance: EVEROLIMUS
     Indication: Head and neck cancer
  3. EVEROLIMUS [Suspect]
     Active Substance: EVEROLIMUS
     Indication: Soft tissue sarcoma
  4. IFOSFAMIDE [Suspect]
     Active Substance: IFOSFAMIDE
     Indication: Head and neck cancer
     Dosage: UNK (AS PER ARST 0332 ARM C)
     Route: 065
     Dates: start: 20220329
  5. IFOSFAMIDE [Suspect]
     Active Substance: IFOSFAMIDE
     Indication: Soft tissue sarcoma
  6. IFOSFAMIDE [Suspect]
     Active Substance: IFOSFAMIDE
     Indication: Cerebral disorder
  7. DOXORUBICIN [Suspect]
     Active Substance: DOXORUBICIN
     Indication: Cerebral disorder
     Dosage: UNK (AS PER ARST 0332 ARM C)
     Route: 065
     Dates: start: 20220329
  8. DOXORUBICIN [Suspect]
     Active Substance: DOXORUBICIN
     Indication: Head and neck cancer
  9. DOXORUBICIN [Suspect]
     Active Substance: DOXORUBICIN
     Indication: Soft tissue sarcoma

REACTIONS (4)
  - Soft tissue sarcoma [Unknown]
  - Head and neck cancer [Unknown]
  - Malignant neoplasm progression [Unknown]
  - Tumour marker increased [Unknown]
